FAERS Safety Report 5399011-1 (Version None)
Quarter: 2007Q3

REPORT INFORMATION
  Report Type: 
  Country: None (occurrence: None)
  Receive Date: 20070727
  Receipt Date: 20070719
  Transmission Date: 20080115
  Serious: Yes (Hospitalization, Disabling, Other)
  Sender: FDA-Public Use
  Company Number: US-ASTRAZENECA-2006UW17541

PATIENT
  Age: 80 Year
  Sex: Female
  Weight: 55.8 kg

DRUGS (14)
  1. CRESTOR [Suspect]
     Indication: HYPERCHOLESTEROLAEMIA
     Route: 048
     Dates: start: 20060321, end: 20060818
  2. CRESTOR [Suspect]
     Indication: HYPERLIPIDAEMIA
     Route: 048
     Dates: start: 20060321, end: 20060818
  3. CRESTOR [Suspect]
     Indication: DYSLIPIDAEMIA
     Route: 048
     Dates: start: 20060321, end: 20060818
  4. FLECAINIDE ACETATE [Concomitant]
     Indication: ATRIAL FLUTTER
     Dates: start: 20040101
  5. ANTIVERT [Concomitant]
  6. XANAX [Concomitant]
  7. WARFARIN SODIUM [Concomitant]
     Indication: ATRIAL FLUTTER
     Dosage: 2 MG-MONDAY, 3 THE REST
     Route: 048
     Dates: start: 20000101
  8. CHOLESTYRAMINE [Concomitant]
     Indication: DIARRHOEA
     Dosage: 1/2 PK QHS PRN
  9. CARAFATE [Concomitant]
  10. M.V.I. [Concomitant]
  11. NAMENDA [Concomitant]
  12. CITRACAL + D [Concomitant]
  13. VERAPAMIL [Concomitant]
     Indication: ATRIAL FLUTTER
     Route: 048
     Dates: start: 20050222, end: 20060523
  14. HALCION [Concomitant]
     Indication: SLEEP DISORDER

REACTIONS (23)
  - ABDOMINAL PAIN [None]
  - ASTHENIA [None]
  - ATRIAL FIBRILLATION [None]
  - BONE DISORDER [None]
  - CHONDROPATHY [None]
  - DIARRHOEA [None]
  - DRY MOUTH [None]
  - DYSLEXIA [None]
  - DYSPHAGIA [None]
  - DYSPHEMIA [None]
  - DYSPHONIA [None]
  - DYSPNOEA [None]
  - DYSURIA [None]
  - FATIGUE [None]
  - HEPATIC ENZYME INCREASED [None]
  - MYALGIA [None]
  - MYOPATHY [None]
  - MYOSITIS [None]
  - RHABDOMYOLYSIS [None]
  - SPEECH DISORDER [None]
  - TONGUE DISORDER [None]
  - TREMOR [None]
  - VAGINAL INFECTION [None]
